FAERS Safety Report 11270031 (Version 1)
Quarter: 2015Q3

REPORT INFORMATION
  Report Type: Spontaneous
  Country: US (occurrence: US)
  Receive Date: 20150714
  Receipt Date: 20150714
  Transmission Date: 20151125
  Serious: No
  Sender: FDA-Public Use
  Company Number: US-PFIZER INC-2015222846

PATIENT
  Age: 52 Year
  Sex: Female
  Weight: 38 kg

DRUGS (4)
  1. SPIRONOLACTONE. [Interacting]
     Active Substance: SPIRONOLACTONE
     Dosage: 25 MG, UNK
     Dates: start: 201506
  2. XANAX [Interacting]
     Active Substance: ALPRAZOLAM
     Indication: INSOMNIA
     Dosage: 25 MG, TABLETS AT BEDTIME, AS NEEDED
  3. SPIRONOLACTONE. [Suspect]
     Active Substance: SPIRONOLACTONE
     Indication: ACNE
     Dosage: 50 MG, UNK
     Dates: start: 201506
  4. VITAMIN D3 [Concomitant]
     Active Substance: CHOLECALCIFEROL
     Indication: SUPPLEMENTATION THERAPY

REACTIONS (8)
  - Migraine [Recovering/Resolving]
  - Dyspnoea [Unknown]
  - Hyperventilation [Unknown]
  - Off label use [Unknown]
  - Blood pressure decreased [Unknown]
  - Burning sensation [Recovering/Resolving]
  - Drug interaction [Unknown]
  - Electrolyte imbalance [Unknown]

NARRATIVE: CASE EVENT DATE: 20150627
